FAERS Safety Report 22035554 (Version 1)
Quarter: 2023Q1

REPORT INFORMATION
  Report Type: Spontaneous
  Country: DE (occurrence: DE)
  Receive Date: 20230224
  Receipt Date: 20230224
  Transmission Date: 20230417
  Serious: Yes (Other)
  Sender: FDA-Public Use
  Company Number: DE-ACAMUELLER-Salofalk-2023-02-06-1

PATIENT
  Sex: Female
  Weight: 54 kg

DRUGS (3)
  1. MESALAMINE [Suspect]
     Active Substance: MESALAMINE
     Indication: Colitis ulcerative
     Dosage: 1 DF, QD
     Dates: start: 20230126, end: 20230204
  2. MESALAMINE [Suspect]
     Active Substance: MESALAMINE
     Dosage: UNK
     Dates: start: 20220501, end: 20230126
  3. Salofalk Granu-Stix 3 G [Concomitant]
     Dosage: 1 DF, QAM
     Route: 048
     Dates: start: 20220201, end: 20230213

REACTIONS (4)
  - Diarrhoea haemorrhagic [Recovering/Resolving]
  - Cardiovascular disorder [Recovering/Resolving]
  - Abdominal pain upper [Recovering/Resolving]
  - Rash [Not Recovered/Not Resolved]

NARRATIVE: CASE EVENT DATE: 20230127
